FAERS Safety Report 17132479 (Version 2)
Quarter: 2023Q2

REPORT INFORMATION
  Report Type: Spontaneous
  Country: FR (occurrence: FR)
  Receive Date: 20191210
  Receipt Date: 20230617
  Transmission Date: 20230722
  Serious: Yes (Death, Hospitalization, Other)
  Sender: FDA-Public Use
  Company Number: FR-AMGEN-FRASP2019203505

PATIENT

DRUGS (7)
  1. ROMIPLOSTIM [Suspect]
     Active Substance: ROMIPLOSTIM
     Indication: Immune thrombocytopenia
     Dosage: UNK
     Route: 065
  2. HYDROXYCHLOROQUINE [Concomitant]
     Active Substance: HYDROXYCHLOROQUINE
     Indication: Product used for unknown indication
     Dosage: UNK
     Route: 065
  3. AZATHIOPRINE [Concomitant]
     Active Substance: AZATHIOPRINE
     Indication: Product used for unknown indication
     Dosage: UNK
     Route: 065
  4. MYCOPHENOLATE MOFETIL [Concomitant]
     Active Substance: MYCOPHENOLATE MOFETIL
     Indication: Product used for unknown indication
     Dosage: UNK
     Route: 065
  5. METHOTREXATE [Concomitant]
     Active Substance: METHOTREXATE
     Indication: Product used for unknown indication
     Dosage: UNK
     Route: 065
  6. CYCLOPHOSPHAMIDE [Concomitant]
     Active Substance: CYCLOPHOSPHAMIDE
     Indication: Product used for unknown indication
     Dosage: UNK
     Route: 065
  7. CYCLOSPORINE [Concomitant]
     Active Substance: CYCLOSPORINE
     Indication: Product used for unknown indication
     Route: 065

REACTIONS (21)
  - Death [Fatal]
  - Multiple organ dysfunction syndrome [Fatal]
  - Immune thrombocytopenia [Fatal]
  - Haemorrhage [Unknown]
  - Unevaluable event [Unknown]
  - Venous thrombosis [Unknown]
  - Infection [Unknown]
  - Hepatic cytolysis [Unknown]
  - Systemic lupus erythematosus [Unknown]
  - Autoimmune haemolytic anaemia [Unknown]
  - Autoimmune neutropenia [Unknown]
  - Aplasia pure red cell [Unknown]
  - Central nervous system lupus [Unknown]
  - Arterial thrombosis [Unknown]
  - Lupus nephritis [Unknown]
  - Superficial vein thrombosis [Unknown]
  - Deep vein thrombosis [Unknown]
  - Hypersensitivity [Unknown]
  - Therapy non-responder [Unknown]
  - Serositis [Unknown]
  - Lupus myocarditis [Unknown]
